FAERS Safety Report 18354266 (Version 1)
Quarter: 2020Q4

REPORT INFORMATION
  Report Type: Spontaneous
  Country: US (occurrence: US)
  Receive Date: 20201006
  Receipt Date: 20201006
  Transmission Date: 20210114
  Serious: Yes (Other)
  Sender: FDA-Public Use
  Company Number: None

PATIENT
  Age: 40 Year
  Sex: Female
  Weight: 112.5 kg

DRUGS (5)
  1. METFORMIN [Concomitant]
     Active Substance: METFORMIN HYDROCHLORIDE
  2. BUPROPION HYDROCHLORIDE XL [Suspect]
     Active Substance: BUPROPION HYDROCHLORIDE
     Indication: DEPRESSION
     Route: 048
     Dates: start: 20200901, end: 20201006
  3. BUPROPION. [Concomitant]
     Active Substance: BUPROPION
  4. VITAMIN D [Concomitant]
     Active Substance: VITAMIN D NOS
  5. PHENTERAMINE [Concomitant]
     Active Substance: PHENTERMINE

REACTIONS (6)
  - Condition aggravated [None]
  - Palpitations [None]
  - Product substitution issue [None]
  - Feeling abnormal [None]
  - Anxiety [None]
  - Paranoia [None]

NARRATIVE: CASE EVENT DATE: 20201005
